FAERS Safety Report 12234620 (Version 1)
Quarter: 2016Q2

REPORT INFORMATION
  Report Type: Report from Study
  Country: BR (occurrence: BR)
  Receive Date: 20160404
  Receipt Date: 20160404
  Transmission Date: 20160815
  Serious: Yes (Death, Hospitalization)
  Sender: FDA-Public Use
  Company Number: PHHY2016BR043344

PATIENT
  Age: 79 Year
  Sex: Male

DRUGS (1)
  1. TASIGNA [Suspect]
     Active Substance: NILOTINIB
     Indication: CHRONIC MYELOID LEUKAEMIA
     Dosage: 800 MG (4 DF), QD
     Route: 065

REACTIONS (4)
  - Infection [Unknown]
  - Cardiovascular disorder [Unknown]
  - Multiple organ dysfunction syndrome [Unknown]
  - Death [Fatal]

NARRATIVE: CASE EVENT DATE: 201602
